FAERS Safety Report 6427307-0 (Version None)
Quarter: 2009Q4

REPORT INFORMATION
  Report Type: 
  Country: None (occurrence: None)
  Receive Date: 20091104
  Receipt Date: 20091026
  Transmission Date: 20100525
  Serious: Yes (Other)
  Sender: FDA-Public Use
  Company Number: B0601381A

PATIENT
  Sex: Female

DRUGS (7)
  1. PAROXETINE [Suspect]
     Indication: SCHIZOPHRENIA
     Route: 048
     Dates: start: 20040101
  2. RISPERIDONE [Suspect]
     Indication: SCHIZOPHRENIA
     Route: 048
     Dates: start: 20040101
  3. NORDETTE-28 [Concomitant]
  4. DIAZEPAM [Concomitant]
     Route: 048
  5. METFORMIN HCL [Concomitant]
  6. HYDROCORTISON [Concomitant]
  7. BECLOMETHASON [Concomitant]
     Route: 045

REACTIONS (1)
  - MACULOPATHY [None]
